FAERS Safety Report 12616132 (Version 2)
Quarter: 2016Q3

REPORT INFORMATION
  Report Type: Spontaneous
  Country: US (occurrence: US)
  Receive Date: 20160802
  Receipt Date: 20160826
  Transmission Date: 20161109
  Serious: No
  Sender: FDA-Public Use
  Company Number: US-LUNDBECK-DKLU2016810

PATIENT
  Age: 65 Year
  Sex: Female

DRUGS (5)
  1. NORTHERA [Suspect]
     Active Substance: DROXIDOPA
     Route: 048
  2. NORTHERA [Suspect]
     Active Substance: DROXIDOPA
     Indication: DIZZINESS
     Dosage: TITRATION SCHEDULE B
     Route: 048
     Dates: start: 20160707
  3. NORTHERA [Suspect]
     Active Substance: DROXIDOPA
     Dosage: SCHEDULE B TITRATION COMPLETE
     Route: 048
     Dates: start: 20160714
  4. NORTHERA [Suspect]
     Active Substance: DROXIDOPA
     Route: 048
  5. NORTHERA [Suspect]
     Active Substance: DROXIDOPA
     Route: 048
     Dates: start: 201607

REACTIONS (5)
  - Somnolence [Unknown]
  - Feeling abnormal [Unknown]
  - Blood pressure increased [Unknown]
  - Feeling hot [Unknown]
  - Dizziness [Unknown]

NARRATIVE: CASE EVENT DATE: 20160713
